FAERS Safety Report 4337630-1 (Version None)
Quarter: 2004Q2

REPORT INFORMATION
  Report Type: 
  Country: None (occurrence: None)
  Receive Date: 20040407
  Receipt Date: 20040324
  Transmission Date: 20050107
  Serious: Yes (Other)
  Sender: FDA-Public Use
  Company Number: ES-JNJFOC-20040306031

PATIENT
  Age: 71 Year
  Sex: Female

DRUGS (5)
  1. REMICADE [Suspect]
     Indication: RHEUMATOID ARTHRITIS
     Dosage: INTRAVENOUS
     Route: 042
     Dates: start: 20001019, end: 20020502
  2. METHOTREXATE [Concomitant]
  3. CORTICOSTEROID NOS (CORTICOSTEROID NOS) [Concomitant]
  4. INSULIN [Concomitant]
  5. DIURETICS NOS (DIURETICS) [Concomitant]

REACTIONS (1)
  - TUBERCULOSIS [None]
